FAERS Safety Report 10742721 (Version 6)
Quarter: 2015Q4

REPORT INFORMATION
  Report Type: Spontaneous
  Country: JP (occurrence: JP)
  Receive Date: 20150127
  Receipt Date: 20151007
  Transmission Date: 20160304
  Serious: Yes (Hospitalization, Other)
  Sender: FDA-Public Use
  Company Number: JP-GLAXOSMITHKLINE-JP2015JPN007305

PATIENT
  Sex: Male

DRUGS (1)
  1. VOTRIENT [Suspect]
     Active Substance: PAZOPANIB HYDROCHLORIDE
     Indication: RENAL CELL CARCINOMA
     Dosage: UNK
     Route: 048
     Dates: start: 20141205

REACTIONS (5)
  - Tumour lysis syndrome [Unknown]
  - Blood pressure systolic increased [Unknown]
  - Tumour haemorrhage [Unknown]
  - Blood albumin decreased [Recovered/Resolved]
  - Anaemia [Recovered/Resolved]
